FAERS Safety Report 24108267 (Version 1)
Quarter: 2024Q3

REPORT INFORMATION
  Report Type: Spontaneous
  Country: CN (occurrence: CN)
  Receive Date: 20240718
  Receipt Date: 20240718
  Transmission Date: 20241017
  Serious: Yes (Life-Threatening, Hospitalization, Other)
  Sender: Steriscience PTE
  Company Number: CN-STERISCIENCE B.V.-2024-ST-001042

PATIENT
  Age: 73 Year
  Sex: Male

DRUGS (15)
  1. VANCOMYCIN [Suspect]
     Active Substance: VANCOMYCIN
     Indication: Prophylaxis
     Dosage: UNK
     Route: 065
  2. VANCOMYCIN [Suspect]
     Active Substance: VANCOMYCIN
     Indication: Fungal infection
  3. MEROPENEM [Suspect]
     Active Substance: MEROPENEM
     Indication: Psittacosis
     Dosage: UNK
     Route: 065
     Dates: start: 202205
  4. MEROPENEM [Suspect]
     Active Substance: MEROPENEM
     Indication: Anti-infective therapy
  5. CEFOPERAZONE SODIUM [Suspect]
     Active Substance: CEFOPERAZONE SODIUM
     Indication: Anti-infective therapy
     Dosage: UNK
     Route: 065
     Dates: start: 202205, end: 202205
  6. CEFOPERAZONE SODIUM [Suspect]
     Active Substance: CEFOPERAZONE SODIUM
     Indication: Psittacosis
  7. SULBACTAM SODIUM [Suspect]
     Active Substance: SULBACTAM SODIUM
     Indication: Anti-infective therapy
     Dosage: UNK
     Route: 065
     Dates: start: 202205, end: 202205
  8. SULBACTAM SODIUM [Suspect]
     Active Substance: SULBACTAM SODIUM
     Indication: Psittacosis
  9. DOXYCYCLINE [Suspect]
     Active Substance: DOXYCYCLINE\DOXYCYCLINE HYCLATE
     Indication: Anti-infective therapy
     Dosage: UNK
     Route: 065
     Dates: start: 202205
  10. DOXYCYCLINE [Suspect]
     Active Substance: DOXYCYCLINE\DOXYCYCLINE HYCLATE
     Indication: Psittacosis
     Dosage: UNK
     Route: 065
  11. DOXYCYCLINE [Suspect]
     Active Substance: DOXYCYCLINE\DOXYCYCLINE HYCLATE
     Dosage: UNK
     Route: 065
     Dates: start: 20220520
  12. MOXIFLOXACIN [Concomitant]
     Active Substance: MOXIFLOXACIN
     Indication: Psittacosis
     Dosage: UNK
     Route: 065
     Dates: start: 20220517
  13. MOXIFLOXACIN [Concomitant]
     Active Substance: MOXIFLOXACIN
     Dosage: UNK
     Route: 065
     Dates: start: 202205
  14. MOXIFLOXACIN [Concomitant]
     Active Substance: MOXIFLOXACIN
     Dosage: UNK
     Route: 065
     Dates: start: 20220520
  15. HEPARIN [Concomitant]
     Active Substance: HEPARIN SODIUM
     Indication: Anticoagulant therapy
     Dosage: UNK
     Route: 065
     Dates: start: 202205

REACTIONS (4)
  - Liver injury [None]
  - Renal injury [None]
  - Drug ineffective [Unknown]
  - Off label use [Unknown]

NARRATIVE: CASE EVENT DATE: 20220501
